FAERS Safety Report 5395956-7 (Version None)
Quarter: 2007Q3

REPORT INFORMATION
  Report Type: 
  Country: None (occurrence: None)
  Receive Date: 20070724
  Receipt Date: 20070712
  Transmission Date: 20080115
  Serious: Yes (Death, Hospitalization, Other)
  Sender: FDA-Public Use
  Company Number: US-PFIZER INC-2006102295

PATIENT
  Sex: Female
  Weight: 85.7 kg

DRUGS (3)
  1. CELEBREX [Suspect]
     Indication: PAIN
     Dates: start: 20010522, end: 20011031
  2. BEXTRA [Suspect]
     Indication: PAIN
     Dates: start: 20020820, end: 20040808
  3. VIOXX [Suspect]
     Indication: PAIN
     Dates: start: 20010124, end: 20010419

REACTIONS (1)
  - MYOCARDIAL INFARCTION [None]
